FAERS Safety Report 7518535-1 (Version None)
Quarter: 2011Q2

REPORT INFORMATION
  Report Type: 
  Country: None (occurrence: None)
  Receive Date: 20110523
  Receipt Date: 20110511
  Transmission Date: 20111010
  Serious: Yes (Hospitalization, Other)
  Sender: FDA-Public Use
  Company Number: BR-000212

PATIENT
  Sex: Female
  Weight: 10.3 kg

DRUGS (1)
  1. NAGLAZYME [Suspect]
     Indication: MUCOPOLYSACCHARIDOSIS IV
     Dosage: (1 MG/KG 1X/WEEK INTRAVENOUS DRIP)
     Route: 041
     Dates: start: 20081016

REACTIONS (4)
  - MYELOPATHY [None]
  - NERVOUS SYSTEM DISORDER [None]
  - VERTEBRAL ARTERY STENOSIS [None]
  - SPINAL CORD COMPRESSION [None]
